FAERS Safety Report 22057498 (Version 2)
Quarter: 2023Q1

REPORT INFORMATION
  Report Type: Spontaneous
  Country: US (occurrence: US)
  Receive Date: 20230303
  Receipt Date: 20230310
  Transmission Date: 20230417
  Serious: No
  Sender: FDA-Public Use
  Company Number: US-ABBVIE-4326284

PATIENT
  Sex: Male

DRUGS (2)
  1. TESTOSTERONE [Suspect]
     Active Substance: TESTOSTERONE
     Indication: Product used for unknown indication
     Route: 061
  2. ANDRODERM [Suspect]
     Active Substance: TESTOSTERONE
     Indication: Product used for unknown indication
     Route: 065

REACTIONS (1)
  - Unevaluable event [Unknown]
